FAERS Safety Report 6683993-1 (Version None)
Quarter: 2010Q2

REPORT INFORMATION
  Report Type: 
  Country: None (occurrence: None)
  Receive Date: 20100406
  Receipt Date: 20100129
  Transmission Date: 20101027
  Serious: No
  Sender: FDA-Public Use
  Company Number: 2010IP000011

PATIENT
  Age: 44 Year
  Sex: Female
  Weight: 77.1115 kg

DRUGS (3)
  1. BEPREVE (BEPOTASTINE BESILATE OPHTHALMIC SOLUTION) [Suspect]
     Indication: CONJUNCTIVITIS
     Dosage: 1 GTT; OPH
     Route: 047
     Dates: start: 20100120, end: 20100120
  2. EFFEXOR XR [Concomitant]
  3. TRIAMTERENE AND HYDROCHLOROTHIAZIDE [Concomitant]

REACTIONS (3)
  - PARAESTHESIA ORAL [None]
  - PRODUCT TASTE ABNORMAL [None]
  - URTICARIA [None]
